FAERS Safety Report 15505441 (Version 1)
Quarter: 2018Q4

REPORT INFORMATION
  Report Type: Spontaneous
  Country: US (occurrence: US)
  Receive Date: 20181016
  Receipt Date: 20181016
  Transmission Date: 20190205
  Serious: No
  Sender: FDA-Public Use
  Company Number: US-NEUROCRINE BIOSCIENCES INC.-2018NBI02968

PATIENT
  Age: 39 Year
  Sex: Female

DRUGS (3)
  1. HALDOL [Concomitant]
     Active Substance: HALOPERIDOL
     Route: 048
  2. INGREZZA [Suspect]
     Active Substance: VALBENAZINE
     Indication: TARDIVE DYSKINESIA
     Route: 048
     Dates: start: 20180910, end: 20180925
  3. PROPRANOLOL [Concomitant]
     Active Substance: PROPRANOLOL HYDROCHLORIDE
     Dates: start: 20180921

REACTIONS (2)
  - Dyspnoea [Unknown]
  - Tremor [Unknown]

NARRATIVE: CASE EVENT DATE: 201809
